FAERS Safety Report 19865041 (Version 1)
Quarter: 2021Q3

REPORT INFORMATION
  Report Type: Spontaneous
  Country: US (occurrence: US)
  Receive Date: 20210921
  Receipt Date: 20210921
  Transmission Date: 20211014
  Serious: Yes (Hospitalization)
  Sender: FDA-Public Use
  Company Number: None

PATIENT
  Age: 63 Year
  Sex: Female
  Weight: 74.98 kg

DRUGS (1)
  1. REGEN?COV [Suspect]
     Active Substance: CASIRIVIMAB\IMDEVIMAB
     Indication: COVID-19 TREATMENT
     Dosage: ?          OTHER FREQUENCY:ONCE;?
     Route: 058
     Dates: start: 20210920, end: 20210920

REACTIONS (9)
  - Vomiting [None]
  - Anxiety [None]
  - Pulse absent [None]
  - Hypertension [None]
  - Malaise [None]
  - Gaze palsy [None]
  - Musculoskeletal stiffness [None]
  - Unresponsive to stimuli [None]
  - Hyperventilation [None]

NARRATIVE: CASE EVENT DATE: 20210920
